FAERS Safety Report 21557450 (Version 1)
Quarter: 2022Q4

REPORT INFORMATION
  Report Type: Report from Study
  Country: IT (occurrence: IT)
  Receive Date: 20221105
  Receipt Date: 20221105
  Transmission Date: 20230113
  Serious: Yes (Other)
  Sender: FDA-Public Use
  Company Number: IT-CELLTRION INC.-2022IT018213

PATIENT

DRUGS (17)
  1. TRASTUZUMAB [Suspect]
     Active Substance: TRASTUZUMAB
     Indication: HER2 positive breast cancer
     Dosage: 600 MILLIGRAM, EVERY 3 WEEKS (DOSAGE TEXT: MOST RECENT DOSE PRIOR TO THE EVENT: 05/JAN/2018)
     Route: 065
     Dates: start: 20170726
  2. LETROZOLE [Suspect]
     Active Substance: LETROZOLE
     Indication: HER2 positive breast cancer
     Dosage: 2.5 MILLIGRAM, QD (ROUTE: ROA-20053000)
     Route: 065
     Dates: start: 20180209
  3. DOCETAXEL [Suspect]
     Active Substance: DOCETAXEL
     Indication: HER2 positive breast cancer
     Dosage: 75 MILLIGRAM/SQ. METER, EVERY 3 WEEKS (DOSAGE TEXT: MOST RECENT DOSE PRIOR TO THE EVENT: 06/SEP/2017
     Route: 065
     Dates: start: 20170726
  4. PERTUZUMAB [Suspect]
     Active Substance: PERTUZUMAB
     Indication: HER2 positive breast cancer
     Dosage: 840 MILLIGRAM, EVERY 3 WEEKS (DOSAGE TEXT: MOST RECENT DOSE PRIOR TO THE EVENT: 05/JAN/2018)
     Route: 065
     Dates: start: 20170818
  5. LEVOTHYROXINE SODIUM [Concomitant]
     Active Substance: LEVOTHYROXINE SODIUM
  6. MIRTAZAPINE [Concomitant]
     Active Substance: MIRTAZAPINE
     Indication: Major depression
     Dates: start: 20190409
  7. SOLIFENACINA [Concomitant]
     Indication: Urinary incontinence
     Dates: start: 20200731
  8. CHLORPHENIRAMINE MALEATE [Concomitant]
     Active Substance: CHLORPHENIRAMINE MALEATE
     Dates: start: 20170726
  9. LOPERAMIDE [Concomitant]
     Active Substance: LOPERAMIDE
     Indication: Diarrhoea
     Dosage: UNK
     Dates: start: 20180126
  10. LOPERAMIDE [Concomitant]
     Active Substance: LOPERAMIDE
     Dosage: UNK
     Dates: start: 20170906
  11. CEFIXIME [Concomitant]
     Active Substance: CEFIXIME
     Indication: Cystitis
     Dosage: ONGOING = NOT CHECKED
     Dates: start: 20200102, end: 20200106
  12. LORAZEPAM [Concomitant]
     Active Substance: LORAZEPAM
     Indication: Major depression
     Dates: start: 20190110
  13. VALPROIC ACID [Concomitant]
     Active Substance: VALPROIC ACID
     Dates: start: 20190128
  14. MAGNESIUM SULFATE [Concomitant]
     Active Substance: MAGNESIUM SULFATE
     Indication: Hypomagnesaemia
     Dates: start: 20200403, end: 20210503
  15. POTASSIUM ASPARTATE [Concomitant]
     Active Substance: POTASSIUM ASPARTATE
     Indication: Hypokalaemia
     Dosage: ONGOING = CHECKED
     Dates: start: 20200130
  16. DULOXETINE [Concomitant]
     Active Substance: DULOXETINE
     Indication: Major depression
     Dates: start: 20190110
  17. TELMISARTAN [Concomitant]
     Active Substance: TELMISARTAN
     Dates: start: 20100310

REACTIONS (2)
  - Hypokalaemia [Recovered/Resolved]
  - Off label use [Unknown]

NARRATIVE: CASE EVENT DATE: 20200130
